FAERS Safety Report 8874445 (Version 2)
Quarter: 2012Q4

REPORT INFORMATION
  Report Type: 
  Country: US (occurrence: US)
  Receive Date: 20121023
  Receipt Date: 20121106
  Transmission Date: 20130627
  Serious: No
  Sender: FDA-Public Use
  Company Number: US-VERTEX PHARMACEUTICAL INC.-2012-023260

PATIENT
  Age: 61 None
  Sex: Female

DRUGS (5)
  1. VX-950 [Suspect]
     Indication: HEPATITIS C
     Dosage: 750 mg, tid
     Route: 048
     Dates: start: 20121008
  2. RIBAVIRIN [Suspect]
     Indication: HEPATITIS C
     Dosage: 5 DF, qd
     Route: 048
     Dates: start: 20121008
  3. PEGASYS [Suspect]
     Indication: HEPATITIS C
     Dosage: 180 ?g, weekly
     Route: 058
     Dates: start: 20121008
  4. NOVOLOG [Concomitant]
     Indication: DIABETES MELLITUS
     Route: 058
  5. LEVEMIR [Concomitant]
     Indication: DIABETES MELLITUS
     Route: 058

REACTIONS (2)
  - Malaise [Not Recovered/Not Resolved]
  - Alopecia [Not Recovered/Not Resolved]
